FAERS Safety Report 8683362 (Version 4)
Quarter: 2013Q3

REPORT INFORMATION
  Report Type: Spontaneous
  Country: US (occurrence: None)
  Receive Date: 20120710
  Receipt Date: 20130815
  Transmission Date: 20140515
  Serious: Yes (Hospitalization, Other)
  Sender: FDA-Public Use
  Company Number: ADR-2012-00727

PATIENT
  Sex: Female

DRUGS (2)
  1. LIORESAL [Suspect]
     Indication: MUSCLE SPASTICITY
     Dosage: 749.5 MCG/DAY
  2. LIORESAL [Suspect]
     Indication: MULTIPLE SCLEROSIS
     Dosage: 749.5 MCG/DAY

REACTIONS (5)
  - Device leakage [None]
  - Pneumonia [None]
  - Musculoskeletal stiffness [None]
  - Implant site calcification [None]
  - Device occlusion [None]
